FAERS Safety Report 6979678-4 (Version None)
Quarter: 2010Q3

REPORT INFORMATION
  Report Type: 
  Country: None (occurrence: None)
  Receive Date: 20100908
  Receipt Date: 20100827
  Transmission Date: 20110219
  Serious: Yes (Hospitalization)
  Sender: FDA-Public Use
  Company Number: A-JP2005-12097

PATIENT
  Age: 42 Year
  Sex: Female
  Weight: 49 kg

DRUGS (12)
  1. TRACLEER [Suspect]
     Indication: PULMONARY ARTERIAL HYPERTENSION
     Dosage: 125 MG, BID, ORAL,  62.5 MG, BID, ORAL, 93.75 MG, BID, ORAL
     Route: 048
     Dates: start: 20050613, end: 20050710
  2. TRACLEER [Suspect]
     Indication: PULMONARY ARTERIAL HYPERTENSION
     Dosage: 125 MG, BID, ORAL,  62.5 MG, BID, ORAL, 93.75 MG, BID, ORAL
     Route: 048
     Dates: start: 20050711, end: 20050815
  3. TRACLEER [Suspect]
     Indication: PULMONARY ARTERIAL HYPERTENSION
     Dosage: 125 MG, BID, ORAL,  62.5 MG, BID, ORAL, 93.75 MG, BID, ORAL
     Route: 048
     Dates: start: 20050816, end: 20050905
  4. TRACLEER [Suspect]
     Indication: PULMONARY ARTERIAL HYPERTENSION
     Dosage: 125 MG, BID, ORAL,  62.5 MG, BID, ORAL, 93.75 MG, BID, ORAL
     Route: 048
     Dates: start: 20050906, end: 20051005
  5. TRACLEER [Suspect]
     Indication: PULMONARY ARTERIAL HYPERTENSION
     Dosage: 125 MG, BID, ORAL,  62.5 MG, BID, ORAL, 93.75 MG, BID, ORAL
     Route: 048
     Dates: start: 20051006, end: 20060604
  6. TRACLEER [Suspect]
     Indication: PULMONARY ARTERIAL HYPERTENSION
     Dosage: 125 MG, BID, ORAL,  62.5 MG, BID, ORAL, 93.75 MG, BID, ORAL
     Route: 048
     Dates: start: 20060605
  7. WARFARIN POTASSIUM (WARFARIN POTASSIUM) [Suspect]
  8. BERAPROST SODIUM (BERAPROST SODIUM) [Concomitant]
  9. FERRIC PYROPHOSPHATE (FERRIC PYROPHOSPHATE) [Concomitant]
  10. THYROID PREPARATIONS FUROSEMIDE (FUROSEMIDE) [Concomitant]
  11. SPIRONOLACTONE [Concomitant]
  12. EPOPROSTENOL SODIUM [Concomitant]

REACTIONS (6)
  - ALANINE AMINOTRANSFERASE INCREASED [None]
  - ASPARTATE AMINOTRANSFERASE INCREASED [None]
  - COAGULATION TEST ABNORMAL [None]
  - DRUG INTERACTION [None]
  - HEPATIC FUNCTION ABNORMAL [None]
  - INTERNATIONAL NORMALISED RATIO DECREASED [None]
